FAERS Safety Report 8972773 (Version 1)
Quarter: 2012Q4

REPORT INFORMATION
  Report Type: 
  Country: BR (occurrence: BR)
  Receive Date: 20121219
  Receipt Date: 20121219
  Transmission Date: 20130627
  Serious: Yes (Other)
  Sender: FDA-Public Use
  Company Number: BR-SANOFI-AVENTIS-2012SA092445

PATIENT
  Sex: Male

DRUGS (3)
  1. ALLEGRA D [Suspect]
     Indication: FLU
     Route: 065
  2. MICARDIS [Concomitant]
  3. SIMVASTATIN [Concomitant]

REACTIONS (3)
  - Exophthalmos [Unknown]
  - Insomnia [Unknown]
  - Agitation [Unknown]
